FAERS Safety Report 10709454 (Version 1)
Quarter: 2015Q1

REPORT INFORMATION
  Report Type: Spontaneous
  Country: US (occurrence: None)
  Receive Date: 20150113
  Receipt Date: 20150113
  Transmission Date: 20150721
  Serious: Yes (Other)
  Sender: FDA-Public Use
  Company Number: None

PATIENT
  Age: 35 Year
  Sex: Female
  Weight: 63.5 kg

DRUGS (1)
  1. ACYCLOVIR. [Suspect]
     Active Substance: ACYCLOVIR
     Indication: HERPES VIRUS INFECTION
     Dosage: 400 MG, 3 PILLS, PER DAY, BY MOUTH
     Route: 048
     Dates: start: 20141204, end: 20141224

REACTIONS (5)
  - Pyrexia [None]
  - Arthritis [None]
  - Flushing [None]
  - Dehydration [None]
  - Disorientation [None]
